FAERS Safety Report 8781348 (Version 1)
Quarter: 2012Q4

REPORT INFORMATION
  Report Type: 
  Country: AR (occurrence: AR)
  Receive Date: 20120913
  Receipt Date: 20120913
  Transmission Date: 20130627
  Serious: Yes (Other)
  Sender: FDA-Public Use
  Company Number: PHHY2012AR079028

PATIENT
  Age: 9 Year
  Sex: Male

DRUGS (1)
  1. CARBAMAZEPINE [Suspect]
     Dosage: 15 mg/Day
     Route: 048

REACTIONS (8)
  - Lennox-Gastaut syndrome [Unknown]
  - Partial seizures [Not Recovered/Not Resolved]
  - Epilepsy [Not Recovered/Not Resolved]
  - Petit mal epilepsy [Not Recovered/Not Resolved]
  - Myoclonic epilepsy [Unknown]
  - Psychomotor hyperactivity [Unknown]
  - Abnormal behaviour [Recovering/Resolving]
  - Learning disability [Unknown]
